FAERS Safety Report 7903671-8 (Version None)
Quarter: 2011Q4

REPORT INFORMATION
  Report Type: 
  Country: None (occurrence: None)
  Receive Date: 20111109
  Receipt Date: 20111103
  Transmission Date: 20120403
  Serious: No
  Sender: FDA-Public Use
  Company Number: US-PFIZER INC-2011270151

PATIENT

DRUGS (3)
  1. PRISTIQ [Suspect]
     Dosage: 150, FREQUENCY UNSPECIFIED
     Dates: start: 20090101
  2. PRISTIQ [Suspect]
     Dosage: 100, FREQUENCY UNSPECIFIED
  3. PRISTIQ [Suspect]
     Dosage: 50, FREQUECY UNSPECIFIED

REACTIONS (2)
  - NAUSEA [None]
  - DIZZINESS [None]
